FAERS Safety Report 6120310-X (Version None)
Quarter: 2009Q1

REPORT INFORMATION
  Report Type: 
  Country: None (occurrence: None)
  Receive Date: 20090312
  Receipt Date: 20090309
  Transmission Date: 20090719
  Serious: Yes (Hospitalization)
  Sender: FDA-Public Use
  Company Number: GXKR2009DE02870

PATIENT
  Age: 106 Year
  Sex: Female

DRUGS (7)
  1. FURORESE (NGX) (FUROSEMIDE) TABLET [Suspect]
     Indication: RENAL IMPAIRMENT
     Dosage: 80-40-0 MG DAILY, ORAL, 40-20-0 MG
     Route: 048
     Dates: start: 20071201
  2. AQUAPHOR TABLET (XIPAMIDE) [Suspect]
     Indication: HYPERTENSION
     Dosage: 10 MG, QD, ORAL
     Route: 048
     Dates: start: 20071201, end: 20080606
  3. ALLOPURINOL [Concomitant]
  4. BONDIOL (ALFACALCIDOL) [Concomitant]
  5. INSULIN ACTRAPHANE HUMAN (INSULIN HUMAN) [Concomitant]
  6. NEXIUM [Concomitant]
  7. REKAWAN (POTASSIUM CHLORIDE) [Concomitant]

REACTIONS (1)
  - RENAL FAILURE [None]
